FAERS Safety Report 7156354 (Version 4)
Quarter: 2014Q1

REPORT INFORMATION
  Report Type: Spontaneous
  Country: US (occurrence: US)
  Receive Date: 20091023
  Receipt Date: 20140122
  Transmission Date: 20141002
  Serious: No
  Sender: FDA-Public Use
  Company Number: US-JNJFOC-20091004607

PATIENT
  Age: 65 Year
  Sex: Female
  Weight: 42.18 kg

DRUGS (6)
  1. DURAGESIC [Suspect]
     Indication: SPINAL PAIN
     Dosage: TWO 100 MCG/HR PATCH
     Route: 062
     Dates: start: 20091010
  2. DURAGESIC [Suspect]
     Indication: SPINAL PAIN
     Route: 062
     Dates: start: 20091010
  3. PERCOCET [Concomitant]
     Indication: PAIN
     Route: 048
  4. MANY OTHER UNSPECIFIED MEDICATIONS [Concomitant]
  5. PREDNISONE [Concomitant]
     Indication: INFLAMMATION
     Route: 048
  6. ESTRADIOL [Concomitant]
     Indication: HYPERHIDROSIS
     Route: 048

REACTIONS (6)
  - Product quality issue [Unknown]
  - Drug ineffective [Recovered/Resolved]
  - Inappropriate schedule of drug administration [Unknown]
  - Inappropriate schedule of drug administration [Not Recovered/Not Resolved]
  - Incorrect dose administered [Not Recovered/Not Resolved]
  - Inadequate analgesia [Not Recovered/Not Resolved]
